FAERS Safety Report 4706380-1 (Version None)
Quarter: 2005Q3

REPORT INFORMATION
  Report Type: 
  Country: None (occurrence: None)
  Receive Date: 20050705
  Receipt Date: 20041025
  Transmission Date: 20060218
  Serious: Yes (Hospitalization)
  Sender: FDA-Public Use
  Company Number: US-BRISTOL-MYERS SQUIBB COMPANY-12743209

PATIENT
  Age: 65 Year
  Sex: Female

DRUGS (10)
  1. TEQUIN [Suspect]
     Indication: URINARY TRACT INFECTION
     Route: 048
     Dates: start: 20041016, end: 20041019
  2. TEQUIN [Suspect]
     Indication: BRONCHITIS
     Route: 048
     Dates: start: 20041016, end: 20041019
  3. LASIX [Concomitant]
  4. NORVASC [Concomitant]
  5. PROTONIX [Concomitant]
  6. NEPHROCAPS [Concomitant]
     Dosage: CAPSULES
  7. ZOCOR [Concomitant]
  8. FOLIC ACID [Concomitant]
  9. LOPRESSOR [Concomitant]
  10. XANAX [Concomitant]

REACTIONS (1)
  - HYPERGLYCAEMIA [None]
